FAERS Safety Report 21077599 (Version 1)
Quarter: 2022Q3

REPORT INFORMATION
  Report Type: Spontaneous
  Country: US (occurrence: US)
  Receive Date: 20220713
  Receipt Date: 20220713
  Transmission Date: 20221027
  Serious: No
  Sender: FDA-Public Use
  Company Number: US-PADAGIS-2022PAD00043

PATIENT

DRUGS (1)
  1. KETOCONAZOLE [Suspect]
     Active Substance: KETOCONAZOLE
     Indication: Alopecia
     Dosage: USED 3 TIMES, SEVERAL DAYS APART
     Route: 065
     Dates: start: 20220411, end: 20220419

REACTIONS (4)
  - Skin exfoliation [Recovering/Resolving]
  - Erythema [Recovering/Resolving]
  - Skin burning sensation [None]
  - Product use in unapproved indication [Unknown]

NARRATIVE: CASE EVENT DATE: 20220411
